FAERS Safety Report 4718123-6 (Version None)
Quarter: 2005Q3

REPORT INFORMATION
  Report Type: 
  Country: None (occurrence: None)
  Receive Date: 20050718
  Receipt Date: 20050201
  Transmission Date: 20060218
  Serious: Yes (Hospitalization)
  Sender: FDA-Public Use
  Company Number: 2005000255

PATIENT
  Age: 72 Year
  Sex: Female
  Weight: 41.2773 kg

DRUGS (8)
  1. TARCEVA [Suspect]
     Indication: RENAL CELL CARCINOMA STAGE UNSPECIFIED
     Dosage: 150 MG (QD) , ORAL
     Route: 048
     Dates: start: 20050124, end: 20050127
  2. TIOTIXENE [Concomitant]
  3. LOPERAMIDE [Concomitant]
  4. FERROUS SULFATE TAB [Concomitant]
  5. MEGESTROL ACETATE [Concomitant]
  6. PROCHLORPERAZINE [Concomitant]
  7. QUETIAPINE FUMARATE [Concomitant]
  8. PSYLLIUM [Concomitant]

REACTIONS (3)
  - ALANINE AMINOTRANSFERASE INCREASED [None]
  - CULTURE STOOL [None]
  - PSYCHOMOTOR HYPERACTIVITY [None]
